FAERS Safety Report 21331747 (Version 2)
Quarter: 2022Q3

REPORT INFORMATION
  Report Type: Spontaneous
  Country: US (occurrence: US)
  Receive Date: 20220914
  Receipt Date: 20220923
  Transmission Date: 20221026
  Serious: No
  Sender: FDA-Public Use
  Company Number: US-JNJFOC-20220864251

PATIENT
  Age: 5 Decade
  Sex: Female
  Weight: 45.400 kg

DRUGS (5)
  1. DITROPAN XL [Suspect]
     Active Substance: OXYBUTYNIN CHLORIDE
     Indication: Neuromyelitis optica spectrum disorder
     Dosage: FOR 18 YEARS
     Route: 065
     Dates: start: 200405
  2. DITROPAN XL [Suspect]
     Active Substance: OXYBUTYNIN CHLORIDE
     Route: 065
     Dates: start: 202208
  3. GABAPENTIN [Concomitant]
     Active Substance: GABAPENTIN
     Indication: Pain
     Route: 065
     Dates: start: 2004
  4. SOLIFENACIN [Concomitant]
     Active Substance: SOLIFENACIN
     Dates: start: 20220814
  5. FESOTERODINE [Concomitant]
     Active Substance: FESOTERODINE
     Dates: start: 20220816

REACTIONS (3)
  - Cystitis [Unknown]
  - Fatigue [Unknown]
  - Off label use [Unknown]

NARRATIVE: CASE EVENT DATE: 20040501
